FAERS Safety Report 6499839-0 (Version None)
Quarter: 2009Q4

REPORT INFORMATION
  Report Type: 
  Country: None (occurrence: None)
  Receive Date: 20091214
  Receipt Date: 20091201
  Transmission Date: 20100525
  Serious: Yes (Death, Hospitalization)
  Sender: FDA-Public Use
  Company Number: 067

PATIENT
  Age: 58 Year
  Sex: Male

DRUGS (1)
  1. FAZACLO 100 MG ODT AZUR PHARMA (FORMERLY ALAMO PHARMACEUTICALS) [Suspect]
     Indication: SCHIZOPHRENIA
     Dosage: 250 MG PO DAILY
     Route: 048
     Dates: start: 20041105, end: 20060826

REACTIONS (3)
  - INTESTINAL OBSTRUCTION [None]
  - PNEUMONIA ASPIRATION [None]
  - VOMITING [None]
